FAERS Safety Report 13382445 (Version 1)
Quarter: 2017Q1

REPORT INFORMATION
  Report Type: Report from Study
  Country: BR (occurrence: BR)
  Receive Date: 20170329
  Receipt Date: 20170329
  Transmission Date: 20170429
  Serious: Yes (Life-Threatening)
  Sender: FDA-Public Use
  Company Number: PHHY2017BR047024

PATIENT
  Age: 67 Year
  Sex: Female

DRUGS (1)
  1. ACLASTA [Suspect]
     Active Substance: ZOLEDRONIC ACID
     Indication: PRODUCT USED FOR UNKNOWN INDICATION
     Route: 065
     Dates: start: 201604

REACTIONS (8)
  - Eating disorder [Unknown]
  - Arthralgia [Unknown]
  - Malaise [Unknown]
  - Fall [Unknown]
  - Contusion [Unknown]
  - Spinal pain [Unknown]
  - Sciatica [Recovering/Resolving]
  - Back pain [Unknown]
